FAERS Safety Report 24317334 (Version 1)
Quarter: 2024Q3

REPORT INFORMATION
  Report Type: Spontaneous
  Country: CN (occurrence: CN)
  Receive Date: 20240913
  Receipt Date: 20240913
  Transmission Date: 20241016
  Serious: Yes (Life-Threatening, Hospitalization, Other)
  Sender: MEITHEAL PHARMACEUTICALS
  Company Number: CN-MEITHEAL-2024MPLIT00278

PATIENT
  Age: 58 Year
  Sex: Female

DRUGS (6)
  1. ZOLEDRONIC ACID [Suspect]
     Active Substance: ZOLEDRONIC ACID
     Indication: Osteoporosis
     Route: 042
  2. PREDNISONE ACETATE [Concomitant]
     Active Substance: PREDNISONE ACETATE
     Indication: Behcet^s syndrome
     Dosage: DOSE REDUCTION 10 MG EVERY 3 DAYS
     Route: 048
  3. PREDNISONE ACETATE [Concomitant]
     Active Substance: PREDNISONE ACETATE
     Dosage: DOSE REDUCTION 10MG EVERY 3 DAYS UNTIL DRUG  WITHDRAWAL
     Route: 048
  4. PREDNISONE ACETATE [Concomitant]
     Active Substance: PREDNISONE ACETATE
     Dosage: DOSE REDUCTION 10MG EVERY 3 DAYS UNTIL DRUG  WITHDRAWAL
     Route: 048
  5. PREDNISONE ACETATE [Concomitant]
     Active Substance: PREDNISONE ACETATE
     Dosage: DOSE REDUCTION 10MG EVERY 3 DAYS UNTIL DRUG  WITHDRAWAL
     Route: 048
  6. THALIDOMIDE [Concomitant]
     Active Substance: THALIDOMIDE
     Indication: Behcet^s syndrome
     Route: 048

REACTIONS (1)
  - Sepsis [Recovered/Resolved]
